FAERS Safety Report 9847387 (Version 2)
Quarter: 2014Q1

REPORT INFORMATION
  Report Type: Spontaneous
  Country: US (occurrence: US)
  Receive Date: 20140127
  Receipt Date: 20140227
  Transmission Date: 20141002
  Serious: Yes (Congenital Anomaly, Other)
  Sender: FDA-Public Use
  Company Number: US-RB-062820-14

PATIENT
  Sex: Female

DRUGS (8)
  1. BUPRENORPHINE GENERIC [Suspect]
     Indication: DRUG DEPENDENCE
     Route: 064
     Dates: start: 2013, end: 2014
  2. BUPRENORPHINE GENERIC [Suspect]
     Route: 063
     Dates: start: 20140206
  3. VALTREX [Concomitant]
     Indication: HERPES SIMPLEX
     Route: 064
     Dates: start: 2013, end: 2014
  4. VALTREX [Concomitant]
     Route: 063
     Dates: start: 2014
  5. RANITIDINE [Concomitant]
     Indication: GASTROOESOPHAGEAL REFLUX DISEASE
     Route: 064
     Dates: start: 2013, end: 2014
  6. RANITIDINE [Concomitant]
     Route: 063
     Dates: start: 2014
  7. GABAPENTIN [Concomitant]
     Indication: PAIN
     Route: 064
     Dates: start: 2013, end: 2014
  8. GABAPENTIN [Concomitant]
     Indication: ANXIETY
     Route: 063
     Dates: start: 2014

REACTIONS (4)
  - Foetal exposure during pregnancy [Recovered/Resolved]
  - Premature baby [Recovered/Resolved]
  - Congenital diaphragmatic hernia [Recovered/Resolved]
  - Exposure during breast feeding [Not Recovered/Not Resolved]
